FAERS Safety Report 6895323-0 (Version None)
Quarter: 2010Q3

REPORT INFORMATION
  Report Type: 
  Country: None (occurrence: None)
  Receive Date: 20100802
  Receipt Date: 20100721
  Transmission Date: 20110219
  Serious: Yes (Other)
  Sender: FDA-Public Use
  Company Number: US-PFIZER INC-2010070956

PATIENT
  Sex: Male

DRUGS (1)
  1. SUTENT [Suspect]
     Indication: RENAL CANCER
     Dosage: 37.5 MG, 1X/DAY (12.5 MG AND 25 MG)
     Route: 048
     Dates: start: 20100517

REACTIONS (3)
  - HAEMOPTYSIS [None]
  - OROPHARYNGEAL PAIN [None]
  - SWOLLEN TONGUE [None]
